FAERS Safety Report 7774170-1 (Version None)
Quarter: 2011Q3

REPORT INFORMATION
  Report Type: 
  Country: None (occurrence: None)
  Receive Date: 20110923
  Receipt Date: 20110919
  Transmission Date: 20111222
  Serious: Yes (Hospitalization)
  Sender: FDA-Public Use
  Company Number: PHEH2011US02710

PATIENT
  Sex: Male
  Weight: 81.633 kg

DRUGS (26)
  1. ROFLUMILAST [Concomitant]
     Dosage: 500 UG, UNK
     Dates: start: 20110827
  2. BISOPROLOL FUMARATE [Concomitant]
     Dosage: 05 MG, UNK
     Dates: start: 20100409
  3. XANAX [Concomitant]
     Dosage: 0.25 MG, UNK
     Dates: start: 20110224
  4. LIPITOR [Concomitant]
     Dosage: 10 MG, UNK
     Dates: start: 20100409
  5. ASPIRIN [Concomitant]
  6. AMBIEN [Concomitant]
     Dosage: 05 MG, UNK
     Dates: start: 20100409
  7. EXJADE [Suspect]
     Indication: MYELODYSPLASTIC SYNDROME
     Dosage: 500 MG, BID
     Route: 048
     Dates: start: 20100405
  8. GABAPENTIN [Concomitant]
     Dosage: 600 MG, UNK
     Dates: start: 20100409
  9. HYDRALAZINE HCL [Concomitant]
     Dosage: 25 MG, UNK
  10. NORVASC [Concomitant]
     Dosage: 2.5 MG, UNK
     Dates: start: 20100409
  11. LASIX [Concomitant]
     Dosage: 40 MG, UNK
     Dates: start: 20110409
  12. PROTONIX [Concomitant]
     Dosage: 40 MG, UNK
  13. ALENDRONATE SODIUM [Concomitant]
     Dosage: 70 MG, UNK
     Dates: start: 20110827
  14. PREDNISONE [Concomitant]
     Dosage: 05 MG, UNK
     Dates: start: 20110409
  15. TRAZODONE HYDROCHLORIDE [Concomitant]
     Dosage: 50 MG, UNK
     Dates: start: 20110827
  16. METOLAZONE [Concomitant]
     Dosage: 2.5 MG, UNK
  17. BACTRIM [Concomitant]
     Dosage: 400 MG, UNK
  18. VITAMIN B COMPLEX CAP [Concomitant]
     Dates: start: 20110224
  19. REVLIMID [Concomitant]
     Dosage: 05 MG, UNK
     Dates: start: 20110409
  20. ULTRAVATE [Concomitant]
  21. BENADRYL [Concomitant]
     Dosage: 25 MG, UNK
     Dates: start: 20110224
  22. POTASSIUM CHLORIDE [Concomitant]
     Dosage: 08 MEQ, UNK
  23. PRILOSEC [Concomitant]
     Dosage: 10 MG, UNK
     Dates: start: 20100409, end: 20110827
  24. CARDIZEM [Concomitant]
     Dosage: 120 MG, UNK
     Dates: start: 20110827
  25. FOLIC ACID [Concomitant]
     Dosage: 01 MG, UNK
     Dates: start: 20110827
  26. COQ10 [Concomitant]
     Dosage: 100 MG, UNK
     Dates: start: 20110827

REACTIONS (4)
  - PARANOIA [None]
  - CONFUSIONAL STATE [None]
  - FLUID RETENTION [None]
  - ASTHENIA [None]
